FAERS Safety Report 16848610 (Version 1)
Quarter: 2019Q4

REPORT INFORMATION
  Report Type: Spontaneous
  Country: US (occurrence: US)
  Receive Date: 20190924
  Receipt Date: 20190924
  Transmission Date: 20200122
  Serious: Yes (Other)
  Sender: FDA-Public Use
  Company Number: None

PATIENT
  Age: 39 Year
  Sex: Female
  Weight: 92.08 kg

DRUGS (1)
  1. PARAGARD T 380A [Suspect]
     Active Substance: COPPER
     Indication: INTRAUTERINE CONTRACEPTION

REACTIONS (8)
  - Visual impairment [None]
  - Blood copper increased [None]
  - Fatigue [None]
  - Complication associated with device [None]
  - Diabetes mellitus inadequate control [None]
  - Alopecia [None]
  - Nausea [None]
  - Kayser-Fleischer ring [None]

NARRATIVE: CASE EVENT DATE: 20190923
